FAERS Safety Report 9704027 (Version 1)
Quarter: 2013Q4

REPORT INFORMATION
  Report Type: Spontaneous
  Country: US (occurrence: US)
  Receive Date: 20131122
  Receipt Date: 20131122
  Transmission Date: 20140711
  Serious: Yes (Hospitalization)
  Sender: FDA-Public Use
  Company Number: US-BRISTOL-MYERS SQUIBB COMPANY-19162981

PATIENT
  Sex: Female

DRUGS (1)
  1. GLUCOPHAGE XR TABS [Suspect]
     Indication: TYPE 2 DIABETES MELLITUS

REACTIONS (1)
  - Lactic acidosis [Recovered/Resolved]
